FAERS Safety Report 18564216 (Version 1)
Quarter: 2020Q4

REPORT INFORMATION
  Report Type: Spontaneous
  Country: US (occurrence: US)
  Receive Date: 20201127
  Receipt Date: 20201127
  Transmission Date: 20210114
  Serious: Yes (Other)
  Sender: FDA-Public Use
  Company Number: None

PATIENT
  Age: 34 Year
  Sex: Female
  Weight: 57.6 kg

DRUGS (1)
  1. DOCETAXEL 160MG/8ML [Suspect]
     Active Substance: DOCETAXEL
     Indication: INVASIVE DUCTAL BREAST CARCINOMA
     Route: 042
     Dates: start: 20201005

REACTIONS (4)
  - Rash [None]
  - Candida infection [None]
  - Product substitution issue [None]
  - Pruritus [None]

NARRATIVE: CASE EVENT DATE: 20201125
